FAERS Safety Report 9813911 (Version 2)
Quarter: 2014Q1

REPORT INFORMATION
  Report Type: Spontaneous
  Country: US (occurrence: US)
  Receive Date: 20140113
  Receipt Date: 20140207
  Transmission Date: 20141002
  Serious: Yes (Other)
  Sender: FDA-Public Use
  Company Number: US-TEVA-455377USA

PATIENT
  Age: 30 Year
  Sex: Female
  Weight: 91.71 kg

DRUGS (1)
  1. PARAGARD 380A [Suspect]
     Indication: CONTRACEPTION
     Route: 015
     Dates: start: 20110418, end: 20131217

REACTIONS (5)
  - Pregnancy with contraceptive device [Recovered/Resolved]
  - Drug ineffective [Recovered/Resolved]
  - Medical device complication [Not Recovered/Not Resolved]
  - Device breakage [Unknown]
  - Embedded device [Unknown]
